FAERS Safety Report 5944296-3 (Version None)
Quarter: 2008Q4

REPORT INFORMATION
  Report Type: 
  Country: None (occurrence: None)
  Receive Date: 20081105
  Receipt Date: 20081016
  Transmission Date: 20090506
  Serious: Yes (Other)
  Sender: FDA-Public Use
  Company Number: 20080284

PATIENT
  Age: 70 Year
  Sex: Male
  Weight: 97.0698 kg

DRUGS (1)
  1. EPINEPHRINE [Suspect]
     Dosage: 1:1000 - 0.8-1.0 ML; FREQUENCY+ ROUTE: OPHTHALMIC
     Route: 047
     Dates: start: 20080811

REACTIONS (3)
  - ENDOPHTHALMITIS [None]
  - INFECTION [None]
  - VISUAL ACUITY REDUCED [None]
